APPROVED DRUG PRODUCT: PULMICORT FLEXHALER
Active Ingredient: BUDESONIDE
Strength: 0.08MG/INH
Dosage Form/Route: POWDER, METERED;INHALATION
Application: N021949 | Product #001
Applicant: CHEPLAPHARM ARZNEIMITTEL GMBH
Approved: Jul 12, 2006 | RLD: Yes | RS: Yes | Type: RX